FAERS Safety Report 17672446 (Version 2)
Quarter: 2020Q2

REPORT INFORMATION
  Report Type: Spontaneous
  Country: US (occurrence: US)
  Receive Date: 20200415
  Receipt Date: 20200427
  Transmission Date: 20200713
  Serious: Yes (Other)
  Sender: FDA-Public Use
  Company Number: US-VYERA PHARMACEUTICALS, LLC-2020VYE00019

PATIENT
  Sex: Female
  Weight: 70.75 kg

DRUGS (5)
  1. SULFASALAZINE. [Concomitant]
     Active Substance: SULFASALAZINE
  2. DARAPRIM [Suspect]
     Active Substance: PYRIMETHAMINE
     Indication: HIV INFECTION
     Dosage: 25 MG, 1X/DAY ^FOR A 42-DAY CYCLE THEREAFTER^
     Route: 048
     Dates: start: 20200228, end: 20200324
  3. SULFADIAZINE. [Concomitant]
     Active Substance: SULFADIAZINE
  4. DARAPRIM [Suspect]
     Active Substance: PYRIMETHAMINE
     Indication: TOXOPLASMOSIS
     Dosage: 100 MG, 1X/DAY
     Route: 048
     Dates: start: 20200227, end: 20200227
  5. LEUCOVORIN. [Concomitant]
     Active Substance: LEUCOVORIN

REACTIONS (4)
  - Choking [Recovered/Resolved]
  - Sensation of foreign body [Recovered/Resolved]
  - Hallucination [Recovered/Resolved]
  - Throat tightness [Recovered/Resolved]

NARRATIVE: CASE EVENT DATE: 2020
